FAERS Safety Report 13071835 (Version 1)
Quarter: 2016Q4

REPORT INFORMATION
  Report Type: Spontaneous
  Country: DE (occurrence: DE)
  Receive Date: 20161229
  Receipt Date: 20161229
  Transmission Date: 20170207
  Serious: Yes (Other)
  Sender: FDA-Public Use
  Company Number: DE-PFIZER INC-2016597357

PATIENT
  Age: 35 Year
  Sex: Female
  Weight: 67 kg

DRUGS (4)
  1. DORMICUM [Suspect]
     Active Substance: MIDAZOLAM\MIDAZOLAM HYDROCHLORIDE
     Indication: SEDATION
     Dosage: 2.5 MG, UNK
     Route: 042
     Dates: start: 20161124, end: 20161124
  2. EZICLEN [Suspect]
     Active Substance: MAGNESIUM SULFATE\POTASSIUM SULFATE\SODIUM SULFATE
     Indication: BOWEL PREPARATION
     Dosage: 1 DF, UNK
     Route: 048
     Dates: start: 20161123, end: 20161124
  3. PROPOFOL. [Suspect]
     Active Substance: PROPOFOL
     Indication: SEDATION
     Dosage: 320 MG, DAILY
     Route: 042
     Dates: start: 20161124, end: 20161124
  4. ESPUMISAN [Suspect]
     Active Substance: DIMETHICONE
     Indication: BOWEL PREPARATION
     Dosage: 2 DF, CHEWABLE TABLETS
     Route: 048
     Dates: start: 20161124, end: 20161124

REACTIONS (5)
  - Sensory level abnormal [Not Recovered/Not Resolved]
  - Coordination abnormal [Not Recovered/Not Resolved]
  - Gait disturbance [Not Recovered/Not Resolved]
  - Multiple sclerosis relapse [Not Recovered/Not Resolved]
  - Diplopia [Not Recovered/Not Resolved]

NARRATIVE: CASE EVENT DATE: 20161125
